FAERS Safety Report 5973201-9 (Version None)
Quarter: 2008Q4

REPORT INFORMATION
  Report Type: 
  Country: None (occurrence: None)
  Receive Date: 20081201
  Receipt Date: 20081119
  Transmission Date: 20090506
  Serious: Yes (Hospitalization)
  Sender: FDA-Public Use
  Company Number: IL-ELI_LILLY_AND_COMPANY-IL200811005271

PATIENT
  Age: 68 Year
  Sex: Female

DRUGS (2)
  1. FORTEO [Suspect]
     Indication: OSTEOPOROSIS
     Dosage: 20 UG, DAILY (1/D)
     Route: 058
     Dates: start: 20080526
  2. CALCIUM [Concomitant]
     Indication: OSTEOPOROSIS
     Dosage: UNK UNK, DAILY (1/D)
     Route: 048

REACTIONS (2)
  - FALL [None]
  - PELVIC FRACTURE [None]
